FAERS Safety Report 22986872 (Version 2)
Quarter: 2023Q4

REPORT INFORMATION
  Report Type: Spontaneous
  Country: US (occurrence: US)
  Receive Date: 20230926
  Receipt Date: 20231010
  Transmission Date: 20240110
  Serious: No
  Sender: FDA-Public Use
  Company Number: US-ELI_LILLY_AND_COMPANY-US202309014413

PATIENT
  Age: 65 Year
  Sex: Female

DRUGS (1)
  1. FORTEO [Suspect]
     Active Substance: TERIPARATIDE
     Indication: Product used for unknown indication
     Dosage: UNK UNK, DAILY
     Route: 065
     Dates: start: 20230918

REACTIONS (5)
  - Product dose omission issue [Unknown]
  - Injection site bruising [Recovering/Resolving]
  - Insomnia [Unknown]
  - Alopecia [Unknown]
  - Bone density decreased [Unknown]

NARRATIVE: CASE EVENT DATE: 20230918
